FAERS Safety Report 12774044 (Version 1)
Quarter: 2016Q3

REPORT INFORMATION
  Report Type: Spontaneous
  Country: US (occurrence: US)
  Receive Date: 20160923
  Receipt Date: 20160923
  Transmission Date: 20161109
  Serious: No
  Sender: FDA-Public Use
  Company Number: US-TEVA-695375USA

PATIENT
  Sex: Male

DRUGS (2)
  1. COPAXONE [Suspect]
     Active Substance: GLATIRAMER ACETATE
     Indication: MULTIPLE SCLEROSIS
     Route: 058
     Dates: start: 20130320
  2. BACLOFEN. [Concomitant]
     Active Substance: BACLOFEN

REACTIONS (1)
  - Muscle spasms [Unknown]

NARRATIVE: CASE EVENT DATE: 2016
